FAERS Safety Report 11290015 (Version 2)
Quarter: 2015Q3

REPORT INFORMATION
  Report Type: Report from Study
  Country: IT (occurrence: IT)
  Receive Date: 20150721
  Receipt Date: 20150804
  Transmission Date: 20151125
  Serious: Yes (Hospitalization)
  Sender: FDA-Public Use
  Company Number: IT-ABBVIE-15P-083-1428441-00

PATIENT
  Age: 74 Year
  Sex: Male
  Weight: 73 kg

DRUGS (4)
  1. CANRENONE [Concomitant]
     Active Substance: CANRENONE
     Route: 048
  2. CANRENONE [Concomitant]
     Active Substance: CANRENONE
     Route: 048
  3. DUODOPA [Suspect]
     Active Substance: CARBIDOPA\LEVODOPA
     Indication: PARKINSON^S DISEASE
     Dosage: MD 8.2 (+3ML)?CR 4.2?ED 3.0
     Route: 050
     Dates: start: 20101018
  4. CANRENONE [Concomitant]
     Active Substance: CANRENONE
     Indication: PRODUCT USED FOR UNKNOWN INDICATION
     Route: 048

REACTIONS (1)
  - Rectal haemorrhage [Unknown]

NARRATIVE: CASE EVENT DATE: 201507
